FAERS Safety Report 6420653-6 (Version None)
Quarter: 2009Q4

REPORT INFORMATION
  Report Type: 
  Country: None (occurrence: None)
  Receive Date: 20091029
  Receipt Date: 20091020
  Transmission Date: 20100525
  Serious: Yes (Hospitalization)
  Sender: FDA-Public Use
  Company Number: US-JNJCH-2009027734

PATIENT

DRUGS (3)
  1. ASPIRIN [Suspect]
     Indication: PROPHYLAXIS
     Dosage: TEXT:UNSPECIFIED
     Route: 048
  2. CLOPIDOGREL [Suspect]
     Indication: PROPHYLAXIS
     Dosage: TEXT:UNSPECIFIED
     Route: 048
  3. LOVAZA [Suspect]
     Indication: PROPHYLAXIS
     Dosage: TEXT:UNSPECIFIED
     Route: 048

REACTIONS (1)
  - RECTAL HAEMORRHAGE [None]
